FAERS Safety Report 16720044 (Version 1)
Quarter: 2019Q3

REPORT INFORMATION
  Report Type: Spontaneous
  Country: FR (occurrence: FR)
  Receive Date: 20190820
  Receipt Date: 20190820
  Transmission Date: 20191005
  Serious: Yes (Hospitalization)
  Sender: FDA-Public Use
  Company Number: FR-TEVA-2019-FR-1093324

PATIENT
  Age: 97 Year
  Sex: Male

DRUGS (8)
  1. LERCAN 10 MG, COMPRIME PELLICULE SECABLE [Concomitant]
     Active Substance: LERCANIDIPINE HYDROCHLORIDE
     Dosage: 1 DOSAGE FORMS
     Route: 048
  2. DOLIPRANE [Concomitant]
     Active Substance: ACETAMINOPHEN
     Dosage: 1 GRAM
     Route: 048
  3. INDAPAMIDE. [Suspect]
     Active Substance: INDAPAMIDE
     Indication: HYPERTENSIVE HEART DISEASE
     Dosage: 1.5 MILLIGRAM
     Route: 048
  4. SPECIAFOLDINE 5 MG, COMPRIME [Concomitant]
     Active Substance: FOLIC ACID
     Dosage: 1 DOSAGE FORMS
     Route: 048
  5. AMIODARONE [Concomitant]
     Active Substance: AMIODARONE
     Indication: CARDIOMYOPATHY
     Dosage: 200 MILLIGRAM
     Route: 048
     Dates: end: 20190107
  6. TARDYFERON 80 MG, COMPRIME ENROBE [Concomitant]
     Active Substance: FERROUS SULFATE
     Dosage: 3 DOSAGE FORMS
     Route: 048
  7. OMEPRAZOLE. [Concomitant]
     Active Substance: OMEPRAZOLE
     Dosage: 20 MILLIGRAM
     Route: 048
  8. FORLAX [Concomitant]
     Active Substance: POLYETHYLENE GLYCOL 4000
     Dosage: NO INFORMATION
     Route: 048

REACTIONS (2)
  - Acute kidney injury [Recovered/Resolved]
  - Condition aggravated [Recovered/Resolved]

NARRATIVE: CASE EVENT DATE: 20190107
